FAERS Safety Report 7774247 (Version 3)
Quarter: 2013Q4

REPORT INFORMATION
  Report Type: Spontaneous
  Country: US (occurrence: US)
  Receive Date: 20110126
  Receipt Date: 20131030
  Transmission Date: 20140711
  Serious: Yes (Hospitalization, Other)
  Sender: FDA-Public Use
  Company Number: US-BAYER-2011-007859

PATIENT
  Age: 39 Year
  Sex: Female
  Weight: 67.12 kg

DRUGS (15)
  1. YAZ [Suspect]
     Indication: PRODUCT USED FOR UNKNOWN INDICATION
  2. YASMIN [Suspect]
     Indication: PRODUCT USED FOR UNKNOWN INDICATION
  3. OCELLA [Suspect]
  4. IBUPROFEN [Concomitant]
     Dosage: UNK UNK, PRN
  5. WELLBUTRIN [Concomitant]
  6. LUNESTA [Concomitant]
  7. PROZAC [Concomitant]
     Dosage: 10 MG, DAILY [TIMES] 14 EVERYMONTH
  8. PROQUIN [Concomitant]
     Dosage: 500 MG, FOR NEXT THREE DAYS
  9. THERAGRAN-M [Concomitant]
  10. DOXYCYCLINE [Concomitant]
     Dosage: 100 MG, UNK
  11. AMOXI-CLAVULANICO [Concomitant]
     Dosage: 875-125 MG
  12. BACTRIM DS [Concomitant]
  13. PROSED/DS [Concomitant]
  14. TORADOL [Concomitant]
  15. NITROFURANTOIN [Concomitant]

REACTIONS (4)
  - Cholecystectomy [None]
  - Pain [None]
  - Cholecystitis chronic [None]
  - Kidney infection [None]
